FAERS Safety Report 7841693-6 (Version None)
Quarter: 2011Q4

REPORT INFORMATION
  Report Type: 
  Country: None (occurrence: None)
  Receive Date: 20111025
  Receipt Date: 20111019
  Transmission Date: 20120403
  Serious: Yes (Death)
  Sender: FDA-Public Use
  Company Number: US-CELGENEUS-163-21880-11040953

PATIENT
  Sex: Male

DRUGS (20)
  1. LIPITOR [Concomitant]
     Dosage: 80 MILLIGRAM
     Route: 048
  2. GLUCOSAMINE [Concomitant]
     Dosage: 1500 MILLIGRAM
     Route: 065
  3. MAGNESIUM OXIDE [Concomitant]
     Dosage: 400 MILLIGRAM
     Route: 048
  4. MULTI-VITAMINS [Concomitant]
     Route: 065
  5. REVLIMID [Suspect]
     Indication: MULTIPLE MYELOMA
     Dosage: 5 MILLIGRAM
     Route: 048
     Dates: start: 20091204, end: 20100924
  6. LOVAZA [Concomitant]
     Dosage: 1 GRAM
     Route: 048
  7. REVLIMID [Suspect]
     Dosage: 5 MILLIGRAM
     Route: 048
     Dates: start: 20110301, end: 20110311
  8. COREG [Concomitant]
     Dosage: 4 MILLIGRAM
     Route: 048
  9. ALLOPURINOL [Concomitant]
     Dosage: 200 MILLIGRAM
     Route: 065
  10. FLUTICASONE PROPIONATE [Concomitant]
     Dosage: 50 MICROGRAM
     Route: 055
  11. GLIPIZIDE [Concomitant]
     Dosage: 10 MILLIGRAM
     Route: 048
  12. CALCIUM WITH VITAMIN D [Concomitant]
     Dosage: 500-400MG UNIT
     Route: 048
  13. TRILIPIX [Concomitant]
     Dosage: 45 MILLIGRAM
     Route: 048
  14. ASPIRIN [Concomitant]
     Dosage: 81 MILLIGRAM
     Route: 048
  15. PERCOCET [Concomitant]
     Dosage: 7.5-325MG
     Route: 048
  16. HUMULIN N [Concomitant]
     Dosage: 30-60 UNITS
     Route: 065
  17. VITAMIN B COMPLEX CAP [Concomitant]
     Route: 065
  18. EYE CLEAN [Concomitant]
     Route: 065
  19. ASCORBIC ACID [Concomitant]
     Dosage: 500 MILLIGRAM
     Route: 048
  20. IRON [Concomitant]
     Route: 065

REACTIONS (1)
  - ACUTE MYOCARDIAL INFARCTION [None]
